FAERS Safety Report 15194426 (Version 1)
Quarter: 2018Q3

REPORT INFORMATION
  Report Type: Spontaneous
  Country: US (occurrence: US)
  Receive Date: 20180725
  Receipt Date: 20180725
  Transmission Date: 20181010
  Serious: Yes (Hospitalization, Other)
  Sender: FDA-Public Use
  Company Number: US-LUPIN PHARMACEUTICALS INC.-2018-05142

PATIENT
  Age: 36 Year
  Sex: Female

DRUGS (8)
  1. MISOPROSTOL. [Suspect]
     Active Substance: MISOPROSTOL
     Indication: POSTPARTUM HAEMORRHAGE
     Dosage: 800 MG, UNK
     Route: 002
  2. FENTANYL. [Concomitant]
     Active Substance: FENTANYL
     Indication: SPINAL ANAESTHESIA
     Dosage: 10 ?G, UNK
     Route: 065
  3. LEVOTHYROXINE. [Concomitant]
     Active Substance: LEVOTHYROXINE
     Indication: HYPOTHYROIDISM
     Dosage: UNK
     Route: 065
  4. BUPIVACAINE. [Concomitant]
     Active Substance: BUPIVACAINE
     Indication: SPINAL ANAESTHESIA
     Dosage: 12 MG OF 0.75%
     Route: 065
  5. DEXTROSE. [Concomitant]
     Active Substance: DEXTROSE
     Indication: SPINAL ANAESTHESIA
     Dosage: UNK
     Route: 065
  6. METHYLERGONOVINE [Suspect]
     Active Substance: METHYLERGONOVINE
     Indication: POSTPARTUM HAEMORRHAGE
     Dosage: 0.2 MG, UNK
     Route: 030
  7. OXYTOCIN. [Suspect]
     Active Substance: OXYTOCIN
     Indication: POSTPARTUM HAEMORRHAGE
     Dosage: 30 UNITS IN 500 ML NORMAL SALINE
     Route: 065
  8. LACTATED RINGERS SOLUTION [Concomitant]
     Active Substance: CALCIUM CHLORIDE\POTASSIUM CHLORIDE\SODIUM CHLORIDE\SODIUM LACTATE
     Indication: PRODUCT USED FOR UNKNOWN INDICATION
     Dosage: 3 L, UNK
     Route: 065

REACTIONS (8)
  - Hypertension [Recovered/Resolved]
  - Atelectasis [Recovered/Resolved]
  - Hypoxia [Recovered/Resolved]
  - Cyanosis [Recovered/Resolved]
  - Tachycardia [Recovered/Resolved]
  - Pulmonary oedema [Recovered/Resolved]
  - Pleural effusion [Recovered/Resolved]
  - Troponin increased [Recovered/Resolved]
